FAERS Safety Report 7507008-8 (Version None)
Quarter: 2011Q2

REPORT INFORMATION
  Report Type: 
  Country: None (occurrence: None)
  Receive Date: 20110526
  Receipt Date: 20110512
  Transmission Date: 20111010
  Serious: Yes (Hospitalization, Other)
  Sender: FDA-Public Use
  Company Number: US-UCBSA-032720

PATIENT
  Sex: Male
  Weight: 74.38 kg

DRUGS (11)
  1. LAMICTAL [Concomitant]
     Indication: CONVULSION
     Route: 048
  2. MELATONIN [Concomitant]
     Indication: SLEEP DISORDER
     Dosage: ONE AT BEDTIME
     Route: 048
     Dates: start: 20110301
  3. ARICEPT [Concomitant]
     Indication: AMNESIA
     Route: 048
     Dates: start: 20110301
  4. MAGNESIUM OXIDE [Concomitant]
     Indication: MINERAL SUPPLEMENTATION
     Route: 048
     Dates: start: 20110101
  5. FLOMAX [Concomitant]
     Indication: BENIGN PROSTATIC HYPERPLASIA
     Route: 048
     Dates: start: 20110301
  6. NAMENDA [Concomitant]
     Route: 048
  7. VIMPAT [Suspect]
     Indication: CONVULSION
     Route: 048
     Dates: start: 20110201
  8. DEPAKOTE [Concomitant]
     Indication: CONVULSION
     Route: 048
  9. RYTHMOL [Concomitant]
     Indication: ATRIAL FIBRILLATION
     Route: 048
     Dates: start: 20110401
  10. PRADAXA [Concomitant]
     Indication: COAGULATION TIME SHORTENED
     Route: 048
     Dates: start: 20110401
  11. RISPERDAL [Concomitant]
     Indication: MOOD ALTERED
     Route: 048
     Dates: start: 20110301, end: 20110510

REACTIONS (6)
  - GAIT DISTURBANCE [None]
  - CONVULSION [None]
  - ATRIAL FIBRILLATION [None]
  - VISION BLURRED [None]
  - FATIGUE [None]
  - MIOSIS [None]
